FAERS Safety Report 17595330 (Version 1)
Quarter: 2020Q1

REPORT INFORMATION
  Report Type: Spontaneous
  Country: NL (occurrence: NL)
  Receive Date: 20200329
  Receipt Date: 20200329
  Transmission Date: 20200409
  Serious: Yes (Other)
  Sender: FDA-Public Use
  Company Number: NL-DEXPHARM-20200270

PATIENT
  Sex: Male

DRUGS (6)
  1. CHLOORHEXIDINE OPL CUTANEOUS 5MG/ML [Suspect]
     Active Substance: CHLORHEXIDINE
     Indication: INFECTION PROPHYLAXIS
  2. METOPROLOL 100 MG TABLET [Concomitant]
     Dosage: 100 MG, ORAL, 1 X DAILY
     Route: 048
  3. LISINOPRIL 10 MG TABLET [Concomitant]
     Active Substance: LISINOPRIL
     Dosage: 10 MG, ORAAL, 2 X DAILY
     Route: 048
  4. SIMVASTATINE 40 MG TABLET [Concomitant]
     Dosage: 40 MG, ORAL, 1 X DAILY
     Route: 048
  5. OMEPRAZOL 20 MG MSR CAPSULE [Concomitant]
     Dosage: 20 MG, ORAL, 2 X DAILY
     Route: 048
  6. CARBASALAATCALCIUM 100 MG POWDER [Concomitant]
     Dosage: 100 MG, ORAL, 1 X DAILY
     Route: 048

REACTIONS (2)
  - Anaphylactic reaction [Unknown]
  - Haemodynamic instability [Unknown]
